FAERS Safety Report 5122147-7 (Version None)
Quarter: 2006Q4

REPORT INFORMATION
  Report Type: 
  Country: None (occurrence: None)
  Receive Date: 20061004
  Receipt Date: 20061004
  Transmission Date: 20070319
  Serious: Yes (Hospitalization)
  Sender: FDA-Public Use
  Company Number: None

PATIENT
  Age: 59 Year
  Sex: Female
  Weight: 92.1 kg

DRUGS (1)
  1. MORPHINE [Suspect]
     Indication: PAIN
     Dosage: 30 MG Q12H PO
     Route: 048

REACTIONS (20)
  - CHEST PAIN [None]
  - CONFUSIONAL STATE [None]
  - DEPRESSION [None]
  - DIABETES MELLITUS [None]
  - DYSARTHRIA [None]
  - ERYTHEMA [None]
  - HYPERTENSION [None]
  - HYPOTHYROIDISM [None]
  - INFECTION [None]
  - MEMORY IMPAIRMENT [None]
  - MUSCLE SPASMS [None]
  - NEURALGIA [None]
  - OEDEMA PERIPHERAL [None]
  - PAIN [None]
  - PAIN IN EXTREMITY [None]
  - SOMNOLENCE [None]
  - SUICIDAL IDEATION [None]
  - URINARY INCONTINENCE [None]
  - URINARY TRACT INFECTION [None]
  - WOUND [None]
